FAERS Safety Report 8469446-9 (Version None)
Quarter: 2012Q2

REPORT INFORMATION
  Report Type: 
  Country: None (occurrence: None)
  Receive Date: 20120626
  Receipt Date: 20120619
  Transmission Date: 20120825
  Serious: Yes (Hospitalization)
  Sender: FDA-Public Use
  Company Number: US-B.I. PHARMACEUTICALS,INC./RIDGEFIELD-2012-BP-05672BP

PATIENT
  Age: 81 Year
  Sex: Male

DRUGS (11)
  1. POTASSIUM CHLORIDE [Concomitant]
     Indication: SUPPLEMENTATION THERAPY
     Dosage: 10 MEQ
     Route: 048
  2. SUCRALFATE [Suspect]
     Route: 048
     Dates: start: 20120216
  3. PRADAXA [Suspect]
     Dosage: 300 MG
     Route: 048
     Dates: start: 20120406, end: 20120601
  4. MULTI-VITAMINS [Concomitant]
     Indication: SUPPLEMENTATION THERAPY
     Route: 048
  5. CRESTOR [Concomitant]
     Indication: BLOOD CHOLESTEROL INCREASED
     Dosage: 10 MG
     Route: 048
  6. CARVEDILOL [Concomitant]
     Indication: CARDIAC DISORDER
     Dosage: 6.25 MG
     Route: 048
  7. CITRACAL PLUS D [Concomitant]
     Indication: SUPPLEMENTATION THERAPY
     Route: 048
  8. FUROSEMIDE [Concomitant]
     Indication: OEDEMA
     Dosage: 20 MG
     Route: 048
  9. PANTOPRAZOLE [Concomitant]
     Route: 048
     Dates: end: 20120201
  10. SOTALOL HYDROCHLORIDE [Concomitant]
     Indication: ATRIAL FIBRILLATION
     Dosage: 240 MG
     Route: 048
  11. PRADAXA [Suspect]
     Indication: ATRIAL FIBRILLATION
     Dosage: 300 MG
     Route: 048
     Dates: start: 20120201, end: 20120405

REACTIONS (4)
  - COUGH [None]
  - ATRIAL FIBRILLATION [None]
  - ABDOMINAL DISCOMFORT [None]
  - LOCAL SWELLING [None]
